FAERS Safety Report 17916047 (Version 1)
Quarter: 2020Q2

REPORT INFORMATION
  Report Type: Spontaneous
  Country: US (occurrence: US)
  Receive Date: 20200618
  Receipt Date: 20200618
  Transmission Date: 20200714
  Serious: Yes (Other)
  Sender: FDA-Public Use
  Company Number: None

PATIENT
  Age: 64 Year
  Sex: Female

DRUGS (13)
  1. KETOCONAZOLE TOP CREAM [Concomitant]
  2. ALBUTEROL HFA [Concomitant]
     Active Substance: ALBUTEROL SULFATE
  3. DILTIAZEM. [Concomitant]
     Active Substance: DILTIAZEM
  4. FUROSEMIDE. [Concomitant]
     Active Substance: FUROSEMIDE
  5. HYDROCORTISONE TOP CREAM [Concomitant]
  6. AQUAPHOR [Concomitant]
     Active Substance: PETROLATUM
  7. TADALAFIL. [Concomitant]
     Active Substance: TADALAFIL
  8. MOMETASONE TOP ONIT [Concomitant]
  9. PERIDEX [Concomitant]
     Active Substance: CHLORHEXIDINE GLUCONATE
  10. OPSUMIT [Suspect]
     Active Substance: MACITENTAN
     Indication: PULMONARY ARTERIAL HYPERTENSION
     Route: 048
     Dates: start: 201701
  11. FUROSEMIDE. [Concomitant]
     Active Substance: FUROSEMIDE
  12. TRIAMCINOLONE TOP CEAM [Concomitant]
  13. AZATHIOPRINE. [Concomitant]
     Active Substance: AZATHIOPRINE

REACTIONS (3)
  - Arthralgia [None]
  - Abdominal pain [None]
  - Hypokalaemia [None]

NARRATIVE: CASE EVENT DATE: 20200518
